FAERS Safety Report 8308873-7 (Version None)
Quarter: 2012Q2

REPORT INFORMATION
  Report Type: 
  Country: None (occurrence: None)
  Receive Date: 20120424
  Receipt Date: 20110201
  Transmission Date: 20120825
  Serious: Yes (Other)
  Sender: FDA-Public Use
  Company Number: US-TEVA-2011000533

PATIENT
  Sex: Male

DRUGS (5)
  1. PROVIGIL [Suspect]
     Route: 048
     Dates: start: 20110101, end: 20110101
  2. RITALIN [Concomitant]
     Indication: NARCOLEPSY
     Dates: start: 20091201, end: 20110101
  3. LUNESTA [Concomitant]
     Indication: INSOMNIA
     Dates: start: 20100601, end: 20110101
  4. AMOXICILLIN [Concomitant]
     Indication: ECZEMA
     Dates: start: 20100101
  5. PROVIGIL [Suspect]
     Indication: NARCOLEPSY
     Route: 048
     Dates: start: 20091102, end: 20101001

REACTIONS (2)
  - DRUG INEFFECTIVE [None]
  - RASH [None]
